FAERS Safety Report 11068282 (Version 1)
Quarter: 2015Q2

REPORT INFORMATION
  Report Type: Spontaneous
  Country: US (occurrence: US)
  Receive Date: 20150427
  Receipt Date: 20150427
  Transmission Date: 20150821
  Serious: No
  Sender: FDA-Public Use
  Company Number: US-ASTRAZENECA-2014SE30191

PATIENT
  Sex: Female

DRUGS (1)
  1. PULMICORT FLEXHALER [Suspect]
     Active Substance: BUDESONIDE
     Indication: LUNG DISORDER
     Dosage: 180 MCG 2 PUFFS TWO TIMES A DAY
     Route: 055
     Dates: start: 20140429

REACTIONS (3)
  - Aphonia [Unknown]
  - Product use issue [Unknown]
  - Dysphonia [Unknown]
